FAERS Safety Report 15340751 (Version 1)
Quarter: 2018Q3

REPORT INFORMATION
  Report Type: Spontaneous
  Country: US (occurrence: US)
  Receive Date: 20180828
  Receipt Date: 20180828
  Transmission Date: 20181010
  Serious: Yes (Disabling)
  Sender: FDA-Public Use
  Company Number: None

PATIENT
  Age: 44 Year
  Sex: Female
  Weight: 63 kg

DRUGS (3)
  1. MACROBID [Suspect]
     Active Substance: NITROFURANTOIN\NITROFURANTOIN MONOHYDRATE
     Indication: URINARY TRACT INFECTION
     Dosage: ?          QUANTITY:10 CAPSULE(S);?
     Route: 048
     Dates: start: 20180825, end: 20180828
  2. PHENAZOPYRIDINE. [Concomitant]
     Active Substance: PHENAZOPYRIDINE
  3. DICLOFENACPOT [Concomitant]

REACTIONS (9)
  - Myalgia [None]
  - Headache [None]
  - Paraesthesia [None]
  - Nausea [None]
  - Therapy cessation [None]
  - Vomiting [None]
  - Dizziness [None]
  - Feeding disorder [None]
  - Anxiety [None]

NARRATIVE: CASE EVENT DATE: 20180827
